FAERS Safety Report 5475247-6 (Version None)
Quarter: 2007Q4

REPORT INFORMATION
  Report Type: 
  Country: None (occurrence: None)
  Receive Date: 20071002
  Receipt Date: 20070920
  Transmission Date: 20080405
  Serious: Yes (Other)
  Sender: FDA-Public Use
  Company Number: US-PFIZER INC-2007080055

PATIENT
  Sex: Female
  Weight: 63.5 kg

DRUGS (6)
  1. CHANTIX [Suspect]
     Indication: SMOKING CESSATION THERAPY
     Dates: start: 20070627, end: 20070901
  2. LIPITOR [Concomitant]
  3. PLAVIX [Concomitant]
  4. AMBIEN [Concomitant]
  5. XANAX [Concomitant]
  6. PROZAC [Concomitant]

REACTIONS (2)
  - AMNESIA [None]
  - MENTAL IMPAIRMENT [None]
